FAERS Safety Report 17494700 (Version 1)
Quarter: 2020Q1

REPORT INFORMATION
  Report Type: Spontaneous
  Country: US (occurrence: US)
  Receive Date: 20200303
  Receipt Date: 20200303
  Transmission Date: 20200409
  Serious: No
  Sender: FDA-Public Use
  Company Number: US-AMNEAL PHARMACEUTICALS-2019-AMRX-02543

PATIENT
  Sex: Female

DRUGS (2)
  1. RYTARY [Suspect]
     Active Substance: CARBIDOPA\LEVODOPA
     Indication: PARKINSON^S DISEASE
     Dosage: 48.75/195, 1 CAPSULES, 3 /DAY
     Route: 048
     Dates: start: 20190820, end: 20190909
  2. RYTARY [Suspect]
     Active Substance: CARBIDOPA\LEVODOPA
     Dosage: 36.25-145 MG, 1 CAPSULES, 3 /DAY
     Route: 048
     Dates: start: 20191105, end: 20191116

REACTIONS (6)
  - Loss of personal independence in daily activities [Unknown]
  - Lethargy [Recovered/Resolved]
  - Asthenia [Unknown]
  - Headache [Unknown]
  - Confusional state [Unknown]
  - Somnolence [Unknown]
